FAERS Safety Report 4728232-3 (Version None)
Quarter: 2005Q3

REPORT INFORMATION
  Report Type: 
  Country: None (occurrence: None)
  Receive Date: 20050729
  Receipt Date: 20050614
  Transmission Date: 20060218
  Serious: No
  Sender: FDA-Public Use
  Company Number: US-BRISTOL-MYERS SQUIBB COMPANY-13002753

PATIENT
  Age: 32 Year
  Weight: 65 kg

DRUGS (1)
  1. BLENOXANE [Suspect]
     Indication: OVARIAN DYSGERMINOMA STAGE III
     Route: 042
     Dates: end: 20050510

REACTIONS (1)
  - ABSCESS [None]
